FAERS Safety Report 17838993 (Version 2)
Quarter: 2020Q3

REPORT INFORMATION
  Report Type: Spontaneous
  Country: US (occurrence: US)
  Receive Date: 20200529
  Receipt Date: 20200804
  Transmission Date: 20201103
  Serious: No
  Sender: FDA-Public Use
  Company Number: US-BRISTOL-MYERS SQUIBB COMPANY-BMS-2020-041812

PATIENT
  Sex: Female
  Weight: 77.11 kg

DRUGS (1)
  1. OPDIVO [Suspect]
     Active Substance: NIVOLUMAB
     Indication: METASTATIC MALIGNANT MELANOMA
     Dosage: 480 MILLIGRAM, QMO
     Route: 065
     Dates: start: 202001

REACTIONS (3)
  - Arthralgia [Unknown]
  - Thyroid disorder [Unknown]
  - Weight increased [Unknown]
